FAERS Safety Report 9996619 (Version 2)
Quarter: 2014Q3

REPORT INFORMATION
  Report Type: Spontaneous
  Country: DE (occurrence: DE)
  Receive Date: 20140311
  Receipt Date: 20140709
  Transmission Date: 20150326
  Serious: Yes (Life-Threatening, Hospitalization, Other)
  Sender: FDA-Public Use
  Company Number: DE-BAYER-2014-035154

PATIENT
  Age: 48 Year
  Sex: Female

DRUGS (1)
  1. STIVARGA [Suspect]
     Active Substance: REGORAFENIB
     Indication: RECTAL CANCER
     Dosage: UNK
     Route: 048
     Dates: start: 201301, end: 20140221

REACTIONS (9)
  - Hyponatraemia [None]
  - Stoma site haemorrhage [Recovered/Resolved]
  - Pancytopenia [None]
  - Gastrointestinal haemorrhage [Recovered/Resolved]
  - General physical health deterioration [None]
  - Thrombocytopenia [None]
  - Epistaxis [None]
  - Hypocalcaemia [None]
  - Escherichia urinary tract infection [None]

NARRATIVE: CASE EVENT DATE: 20140305
